FAERS Safety Report 24036861 (Version 4)
Quarter: 2024Q3

REPORT INFORMATION
  Report Type: Spontaneous
  Country: US (occurrence: US)
  Receive Date: 20240701
  Receipt Date: 20240814
  Transmission Date: 20241017
  Serious: No
  Sender: CALLIDITAS THERAPEUTICS
  Company Number: US-Calliditas-2024CAL01152

PATIENT
  Age: 64 Year
  Sex: Male
  Weight: 113.4 kg

DRUGS (8)
  1. TARPEYO [Suspect]
     Active Substance: BUDESONIDE
     Indication: IgA nephropathy
     Route: 048
     Dates: start: 20240421
  2. VITAMINS [Concomitant]
     Active Substance: VITAMINS
  3. ELIQUIS [Concomitant]
     Active Substance: APIXABAN
  4. FARXIGA [Concomitant]
     Active Substance: DAPAGLIFLOZIN PROPANEDIOL
  5. ALLOPURINOL [Concomitant]
     Active Substance: ALLOPURINOL
  6. LIPITOR [Concomitant]
     Active Substance: ATORVASTATIN CALCIUM
  7. SODIUM BICARBONATE [Concomitant]
     Active Substance: SODIUM BICARBONATE
  8. TYLENOL [Concomitant]
     Active Substance: ACETAMINOPHEN

REACTIONS (8)
  - Muscle spasms [Not Recovered/Not Resolved]
  - Dehydration [Not Recovered/Not Resolved]
  - Gingivitis [Recovering/Resolving]
  - Skin laceration [Recovering/Resolving]
  - Impaired healing [Recovering/Resolving]
  - Increased tendency to bruise [Recovering/Resolving]
  - Dental discomfort [Unknown]
  - Stress [Unknown]

NARRATIVE: CASE EVENT DATE: 20240628
